FAERS Safety Report 24090328 (Version 1)
Quarter: 2024Q3

REPORT INFORMATION
  Report Type: Spontaneous
  Country: FR (occurrence: FR)
  Receive Date: 20240715
  Receipt Date: 20240715
  Transmission Date: 20241017
  Serious: Yes (Hospitalization)
  Sender: ACCORD
  Company Number: None

PATIENT
  Age: 30 Year
  Sex: Female
  Weight: 50 kg

DRUGS (8)
  1. METHOTREXATE [Suspect]
     Active Substance: METHOTREXATE
     Indication: Psoriasis
     Dates: start: 201808, end: 20190808
  2. ADALIMUMAB [Suspect]
     Active Substance: ADALIMUMAB\ISOPROPYL ALCOHOL
     Indication: Psoriasis
     Dosage: STRENGTH: 40 MG, SOLUTION FOR INJECTION IN PRE-FILLED PEN
     Dates: start: 20190808, end: 202109
  3. RISANKIZUMAB [Suspect]
     Active Substance: RISANKIZUMAB
     Indication: Psoriasis
     Dosage: STRENGTH: 150 MG, SOLUTION FOR INJECTION IN PRE-FILLED PEN
     Dates: start: 20220818, end: 20230821
  4. BRODALUMAB [Suspect]
     Active Substance: BRODALUMAB
     Indication: Psoriasis
     Dosage: STRENGTH : 210 MG, SOLUTION FOR INJECTION IN PRE-FILLED SYRINGE
     Dates: start: 20230821, end: 20231227
  5. TALTZ [Suspect]
     Active Substance: IXEKIZUMAB
     Indication: Psoriasis
     Dosage: STRENGTH: 80 MG, SOLUTION FOR INJECTION IN PRE-FILLED PEN
     Dates: start: 202109, end: 20220818
  6. DESOGESTREL [Concomitant]
     Active Substance: DESOGESTREL
     Indication: Hormonal contraception
     Dosage: STRENGTH: 75 MCG
  7. FERROUS SULFATE [Concomitant]
     Active Substance: FERROUS SULFATE
     Indication: Mineral supplementation
     Dosage: STRENGTH: 50 MG
  8. METHOTREXATE [Suspect]
     Active Substance: METHOTREXATE
     Indication: Psoriasis
     Dates: start: 20190124, end: 20190808

REACTIONS (1)
  - B-cell type acute leukaemia [Not Recovered/Not Resolved]

NARRATIVE: CASE EVENT DATE: 20231223
